FAERS Safety Report 23317497 (Version 5)
Quarter: 2025Q3

REPORT INFORMATION
  Report Type: Spontaneous
  Country: US (occurrence: US)
  Receive Date: 20231219
  Receipt Date: 20250905
  Transmission Date: 20251020
  Serious: No
  Sender: ROCHE
  Company Number: US-ROCHE-3404443

PATIENT
  Age: 17 Year
  Sex: Male
  Weight: 74.84 kg

DRUGS (7)
  1. HEMLIBRA [Suspect]
     Active Substance: EMICIZUMAB-KXWH
     Indication: Factor VIII deficiency
     Dosage: STRENGTH 105MG/0.7ML
     Route: 058
     Dates: start: 202103
  2. HEMLIBRA [Suspect]
     Active Substance: EMICIZUMAB-KXWH
     Route: 058
     Dates: start: 201207, end: 20240103
  3. HEMLIBRA [Suspect]
     Active Substance: EMICIZUMAB-KXWH
     Dosage: STRENGTH: 105MG/.7ML
     Route: 058
     Dates: start: 201207
  4. HEMLIBRA [Suspect]
     Active Substance: EMICIZUMAB-KXWH
     Dosage: STRENGTH: 150MG/ML
     Route: 058
     Dates: start: 201207
  5. HEMLIBRA [Suspect]
     Active Substance: EMICIZUMAB-KXWH
     Dosage: STRENGTH: 105MG/.7ML
     Route: 058
     Dates: start: 201207
  6. HEMLIBRA [Suspect]
     Active Substance: EMICIZUMAB-KXWH
     Dosage: STRENGTH: 105 MG/ 0.7 ML
     Route: 058
     Dates: start: 20250516
  7. HEMLIBRA [Suspect]
     Active Substance: EMICIZUMAB-KXWH
     Dosage: STRENGTH: 150MG/ ML
     Route: 058
     Dates: start: 201207

REACTIONS (6)
  - Haemorrhage [Recovered/Resolved]
  - Joint injury [Unknown]
  - Arthropathy [Unknown]
  - Haemorrhage [Unknown]
  - Off label use [Unknown]
  - Injury [Unknown]

NARRATIVE: CASE EVENT DATE: 20240321
